FAERS Safety Report 8613067-1 (Version None)
Quarter: 2012Q3

REPORT INFORMATION
  Report Type: 
  Country: None (occurrence: None)
  Receive Date: 20120822
  Receipt Date: 20120725
  Transmission Date: 20120928
  Serious: No
  Sender: FDA-Public Use
  Company Number: GB-009507513-1207GBR007989

PATIENT

DRUGS (1)
  1. SINEMET CR [Suspect]
     Dosage: UNK
     Route: 048

REACTIONS (2)
  - ADVERSE EVENT [None]
  - PNEUMONIA ASPIRATION [None]
